FAERS Safety Report 5500719-5 (Version None)
Quarter: 2007Q4

REPORT INFORMATION
  Report Type: 
  Country: None (occurrence: None)
  Receive Date: 20071029
  Receipt Date: 20070611
  Transmission Date: 20080405
  Serious: Yes (Hospitalization, Other)
  Sender: FDA-Public Use
  Company Number: ES-MERCK-0706USA02263

PATIENT
  Age: 72 Year
  Sex: Male

DRUGS (1)
  1. MODURETIC 5-50 [Suspect]
     Route: 048
     Dates: start: 20060101, end: 20070320

REACTIONS (4)
  - ALKALOSIS [None]
  - HYPOCHLORAEMIA [None]
  - HYPOKALAEMIA [None]
  - HYPONATRAEMIA [None]
